FAERS Safety Report 8053226-2 (Version None)
Quarter: 2012Q1

REPORT INFORMATION
  Report Type: 
  Country: None (occurrence: None)
  Receive Date: 20120118
  Receipt Date: 20120106
  Transmission Date: 20120608
  Serious: Yes (Hospitalization)
  Sender: FDA-Public Use
  Company Number: FR-ELI_LILLY_AND_COMPANY-FR201102007616

PATIENT
  Sex: Male
  Weight: 61 kg

DRUGS (2)
  1. CISPLATIN [Suspect]
     Indication: NON-SMALL CELL LUNG CANCER
     Dosage: 129 MG, 21 DAYS/CYCLE
     Route: 042
     Dates: start: 20110207
  2. GEMCITABINE HYDROCHLORIDE [Suspect]
     Indication: NON-SMALL CELL LUNG CANCER
     Dosage: 2113 MG, 21 DAYS/CYCLE
     Route: 042
     Dates: start: 20110207

REACTIONS (2)
  - THROMBOCYTOPENIA [None]
  - HAEMOPTYSIS [None]
